FAERS Safety Report 12982693 (Version 1)
Quarter: 2016Q4

REPORT INFORMATION
  Report Type: Spontaneous
  Country: FR (occurrence: FR)
  Receive Date: 20161129
  Receipt Date: 20161129
  Transmission Date: 20170207
  Serious: Yes (Hospitalization, Other)
  Sender: FDA-Public Use
  Company Number: FR-GLAXOSMITHKLINE-FR2016GSK174618

PATIENT
  Age: 61 Year
  Sex: Male

DRUGS (14)
  1. CIFLOX [Suspect]
     Active Substance: CIPROFLOXACIN
     Indication: PROSTATITIS ESCHERICHIA COLI
     Dosage: UNK
     Route: 048
     Dates: start: 20160922, end: 20160926
  2. TRAMADOL. [Concomitant]
     Active Substance: TRAMADOL
     Dosage: UNK
     Dates: start: 20160922
  3. ULTRA LEVURE [Concomitant]
     Active Substance: SACCHAROMYCES CEREVISIAE
     Dosage: UNK
     Dates: start: 20161008
  4. SPASFON [Concomitant]
     Active Substance: PHLOROGLUCINOL
     Dosage: UNK
     Dates: start: 20160922
  5. ATORVASTATINE [Concomitant]
     Active Substance: ATORVASTATIN
  6. XATRAL [Concomitant]
     Active Substance: ALFUZOSIN
  7. VOGALENE [Concomitant]
     Active Substance: METOPIMAZINE
     Dosage: UNK
     Dates: start: 20160922
  8. ZINNAT [Suspect]
     Active Substance: CEFUROXIME AXETIL
     Indication: PROSTATITIS ESCHERICHIA COLI
     Dosage: 250 MG, BID
     Route: 048
     Dates: start: 20161008
  9. FURADANTINE [Suspect]
     Active Substance: NITROFURANTOIN
     Indication: PROSTATITIS ESCHERICHIA COLI
     Dosage: 100 MG, TID
     Route: 048
     Dates: start: 20160926, end: 20161005
  10. SPIRAMYCIN [Concomitant]
     Active Substance: SPIRAMYCIN
     Indication: PROSTATITIS ESCHERICHIA COLI
     Dosage: 1.5 MILLION IU, UNK
     Dates: start: 20161008
  11. METRONIDAZOLE. [Concomitant]
     Active Substance: METRONIDAZOLE
     Indication: PROSTATITIS ESCHERICHIA COLI
     Dosage: 250 MG, UNK
     Dates: start: 20161008
  12. LOPERAMIDE [Concomitant]
     Active Substance: LOPERAMIDE
     Dosage: UNK
     Dates: start: 20160922
  13. MONURIL [Suspect]
     Active Substance: FOSFOMYCIN SODIUM
     Indication: PROSTATITIS ESCHERICHIA COLI
     Dosage: 3 G, SINGLE
     Route: 048
     Dates: start: 20160926, end: 20160926
  14. TAZOCILLINE [Concomitant]
     Active Substance: PIPERACILLIN SODIUM\TAZOBACTAM SODIUM
     Dosage: UNK
     Dates: start: 20161026

REACTIONS (1)
  - Drug reaction with eosinophilia and systemic symptoms [Not Recovered/Not Resolved]

NARRATIVE: CASE EVENT DATE: 20161029
